FAERS Safety Report 10339559 (Version 4)
Quarter: 2014Q3

REPORT INFORMATION
  Report Type: Spontaneous
  Country: US (occurrence: US)
  Receive Date: 20140724
  Receipt Date: 20140829
  Transmission Date: 20150326
  Serious: Yes (Hospitalization, Other)
  Sender: FDA-Public Use
  Company Number: PHHY2014US083960

PATIENT
  Sex: Male

DRUGS (10)
  1. LIORESAL [Suspect]
     Active Substance: BACLOFEN
     Indication: MUSCLE SPASTICITY
     Dosage: 515 UG, DAILY (CONCENTRATION 500/MCG/ML)
     Route: 037
  2. LIORESAL [Suspect]
     Active Substance: BACLOFEN
     Dosage: UNK (INCREASED 20% EVERY OTHER DAY)
     Route: 037
  3. LIORESAL [Suspect]
     Active Substance: BACLOFEN
     Dosage: UNK UKN, UNK
     Route: 037
  4. LIORESAL [Suspect]
     Active Substance: BACLOFEN
     Dosage: 900 UG, UNK (CONCENTRATION 200MCG/ML)
     Route: 037
  5. MORPHINE [Suspect]
     Active Substance: MORPHINE
     Dosage: 15 MG, BID
  6. OXYCODONE [Suspect]
     Active Substance: OXYCODONE
     Dosage: 5 MG, AFTER 6 HOURLY
  7. LIORESAL [Suspect]
     Active Substance: BACLOFEN
     Dosage: 549 UG, PER DAY
     Route: 037
  8. BACLOFEN. [Suspect]
     Active Substance: BACLOFEN
     Dosage: 30 MG, QID
     Route: 048
  9. DIAZEPAM. [Suspect]
     Active Substance: DIAZEPAM
     Dosage: 2 MG, TID
     Route: 048
  10. LIORESAL [Suspect]
     Active Substance: BACLOFEN
     Dosage: 906 UG/DAY
     Route: 037

REACTIONS (7)
  - Hypotonia [Recovering/Resolving]
  - Muscle spasms [Recovering/Resolving]
  - No therapeutic response [Recovering/Resolving]
  - Pyrexia [Recovering/Resolving]
  - Muscle spasticity [Recovering/Resolving]
  - Pneumonia [Recovering/Resolving]
  - Therapeutic response decreased [Recovering/Resolving]
